FAERS Safety Report 7070173-3 (Version None)
Quarter: 2010Q4

REPORT INFORMATION
  Report Type: 
  Country: None (occurrence: None)
  Receive Date: 20101028
  Receipt Date: 20100830
  Transmission Date: 20110411
  Serious: No
  Sender: FDA-Public Use
  Company Number: US-WYE-H17277110

PATIENT
  Sex: Female
  Weight: 76.27 kg

DRUGS (2)
  1. PROTONIX [Suspect]
     Indication: GASTROOESOPHAGEAL REFLUX DISEASE
     Route: 048
     Dates: start: 20100827
  2. LEVOTHYROXINE [Concomitant]

REACTIONS (2)
  - CONDITION AGGRAVATED [None]
  - NAUSEA [None]
